FAERS Safety Report 11451724 (Version 1)
Quarter: 2015Q3

REPORT INFORMATION
  Report Type: Spontaneous
  Country: US (occurrence: US)
  Receive Date: 20150903
  Receipt Date: 20150903
  Transmission Date: 20151125
  Serious: Yes (Other)
  Sender: FDA-Public Use
  Company Number: US-ROCHE-1073977

PATIENT
  Age: 52 Year
  Sex: Male
  Weight: 73.55 kg

DRUGS (3)
  1. RIBAVIRIN. [Concomitant]
     Active Substance: RIBAVIRIN
     Dosage: 200 MG 3 IN AM AND 2 IN PM
     Route: 065
     Dates: start: 20120319, end: 20120402
  2. PEGASYS [Suspect]
     Active Substance: PEGINTERFERON ALFA-2A
     Indication: PRODUCT USED FOR UNKNOWN INDICATION
     Route: 065
     Dates: start: 20120319, end: 20120402
  3. INCIVEK [Concomitant]
     Active Substance: TELAPREVIR
     Route: 065
     Dates: end: 20120402

REACTIONS (4)
  - Balance disorder [Unknown]
  - Dysarthria [Unknown]
  - Pyrexia [Unknown]
  - Suicidal ideation [Unknown]

NARRATIVE: CASE EVENT DATE: 20120402
